FAERS Safety Report 9639705 (Version 1)
Quarter: 2013Q4

REPORT INFORMATION
  Report Type: Spontaneous
  Country: US (occurrence: None)
  Receive Date: 20131021
  Receipt Date: 20131021
  Transmission Date: 20140711
  Serious: Yes (Death, Hospitalization)
  Sender: FDA-Public Use
  Company Number: None

PATIENT
  Age: 67 Year
  Sex: Male
  Weight: 75.75 kg

DRUGS (2)
  1. CYMBALTA [Suspect]
     Indication: PANIC ATTACK
     Dosage: 1 PILL TWICE DAILY
     Route: 048
     Dates: end: 20130727
  2. CYMBALTA [Suspect]
     Indication: DEPRESSION
     Dosage: 1 PILL TWICE DAILY
     Route: 048
     Dates: end: 20130727

REACTIONS (2)
  - Confusional state [None]
  - Catatonia [None]
